FAERS Safety Report 17958207 (Version 1)
Quarter: 2020Q2

REPORT INFORMATION
  Report Type: Spontaneous
  Country: US (occurrence: US)
  Receive Date: 20200629
  Receipt Date: 20200629
  Transmission Date: 20200714
  Serious: Yes (Hospitalization, Other)
  Sender: FDA-Public Use
  Company Number: US-ALLERGAN-2024225US

PATIENT
  Sex: Female

DRUGS (10)
  1. TRAZODONE [Concomitant]
     Active Substance: TRAZODONE HYDROCHLORIDE
     Indication: SLEEP DISORDER
     Dosage: 100 MG, QPM
     Route: 048
  2. BIOTIN [Concomitant]
     Active Substance: BIOTIN
     Dosage: 10000 ?G, QD
     Route: 048
  3. NITROFURANTOIN. [Concomitant]
     Active Substance: NITROFURANTOIN
     Indication: CYSTITIS
     Dosage: 50 MG, QD, STARTED 6-8 MONTHS AGO
     Route: 048
  4. LISINOPRIL. [Concomitant]
     Active Substance: LISINOPRIL
     Indication: HYPERTENSION
     Dosage: 20 MG, QD
     Route: 048
  5. VITAMIN B12 [Concomitant]
     Active Substance: CYANOCOBALAMIN
     Dosage: INJECTION, 1,000 MCG ONCE EVERY 2 WEEKS
  6. MYRBETRIQ [Concomitant]
     Active Substance: MIRABEGRON
     Indication: HYPERTONIC BLADDER
     Dosage: 50 MG, 3 TIMES PER WEEK, STARTED 1 YEAR AGO
     Route: 048
  7. VIIBRYD [Suspect]
     Active Substance: VILAZODONE HYDROCHLORIDE
     Indication: DEPRESSION
     Dosage: 20 MG, QD
     Route: 048
     Dates: start: 201912, end: 20200613
  8. VITRON C [Concomitant]
     Active Substance: ASCORBIC ACID\IRON
     Indication: ALOPECIA
     Dosage: 2 DF, QD
     Route: 048
  9. BUPROPION XL [Concomitant]
     Active Substance: BUPROPION
     Indication: DEPRESSION
     Dosage: 300 MG AND 150 MG ONCE DAILY
     Route: 048
  10. VITAMIN D3 [Concomitant]
     Active Substance: CHOLECALCIFEROL
     Dosage: 5000 UNITS, QD
     Route: 048

REACTIONS (4)
  - Device malfunction [Recovered/Resolved]
  - Therapy interrupted [Unknown]
  - Renal failure [Not Recovered/Not Resolved]
  - Crying [Not Recovered/Not Resolved]

NARRATIVE: CASE EVENT DATE: 202002
